FAERS Safety Report 6972013-7 (Version None)
Quarter: 2010Q3

REPORT INFORMATION
  Report Type: 
  Country: None (occurrence: None)
  Receive Date: 20100908
  Receipt Date: 20100908
  Transmission Date: 20110219
  Serious: Yes (Other)
  Sender: FDA-Public Use
  Company Number: None

PATIENT
  Age: 60 Year
  Sex: Female
  Weight: 75.7507 kg

DRUGS (1)
  1. ATENOLOL [Suspect]
     Indication: BLOOD PRESSURE INCREASED
     Dosage: 25MG 1 A DAY ORAL
     Route: 048
     Dates: start: 20100721

REACTIONS (3)
  - BLOOD PRESSURE INCREASED [None]
  - PRODUCT QUALITY ISSUE [None]
  - WRONG TECHNIQUE IN DRUG USAGE PROCESS [None]
